FAERS Safety Report 4868938-9 (Version None)
Quarter: 2005Q4

REPORT INFORMATION
  Report Type: 
  Country: None (occurrence: None)
  Receive Date: 20051229
  Receipt Date: 20051216
  Transmission Date: 20060501
  Serious: Yes (Hospitalization)
  Sender: FDA-Public Use
  Company Number: US-MERCK-0512USA03365

PATIENT
  Age: 64 Year
  Sex: Male

DRUGS (5)
  1. DECADRON [Suspect]
     Route: 048
  2. DIETHYLSTILBESTROL [Concomitant]
     Route: 065
  3. IMATINIB MESYLATE [Suspect]
     Route: 065
  4. VINCRISTINE SULFATE [Suspect]
     Route: 065
  5. CYCLOPHOSPHAMIDE [Suspect]
     Route: 065

REACTIONS (10)
  - ANOREXIA [None]
  - ASTHENIA [None]
  - BLOOD ALKALINE PHOSPHATASE INCREASED [None]
  - HAEMATOCRIT DECREASED [None]
  - HAEMODIALYSIS [None]
  - LIPASE INCREASED [None]
  - NAUSEA [None]
  - RASH VESICULAR [None]
  - RENAL FAILURE ACUTE [None]
  - VOMITING [None]
